FAERS Safety Report 12978870 (Version 1)
Quarter: 2016Q4

REPORT INFORMATION
  Report Type: Report from Study
  Country: None (occurrence: US)
  Receive Date: 20161128
  Receipt Date: 20161128
  Transmission Date: 20170207
  Serious: Yes (Hospitalization)
  Sender: FDA-Public Use
  Company Number: US-ABBVIE-16K-163-1787880-00

PATIENT
  Age: 75 Year
  Sex: Male
  Weight: 90.8 kg

DRUGS (3)
  1. HUMIRA [Suspect]
     Active Substance: ADALIMUMAB
     Dosage: LOADING DOSE (TWO WEEKS AFTER 160 MG DOSE)
     Route: 058
     Dates: start: 2016, end: 2016
  2. HUMIRA [Suspect]
     Active Substance: ADALIMUMAB
     Indication: COLITIS ULCERATIVE
     Dosage: LOADING DOSE
     Route: 058
     Dates: start: 201601, end: 201601
  3. HUMIRA [Suspect]
     Active Substance: ADALIMUMAB
     Dosage: FOUR WEEKS AFTER 160 MG DOSE
     Route: 058
     Dates: start: 2016, end: 201611

REACTIONS (4)
  - Asthenia [Recovered/Resolved]
  - Animal bite [Not Recovered/Not Resolved]
  - Cellulitis [Recovered/Resolved]
  - Animal bite [Recovered/Resolved]

NARRATIVE: CASE EVENT DATE: 2016
